FAERS Safety Report 13892466 (Version 1)
Quarter: 2017Q3

REPORT INFORMATION
  Report Type: Report from Study
  Country: US (occurrence: US)
  Receive Date: 20170822
  Receipt Date: 20170822
  Transmission Date: 20171127
  Serious: No
  Sender: FDA-Public Use
  Company Number: PHEH2017US026294

PATIENT
  Sex: Female

DRUGS (1)
  1. NEORAL [Suspect]
     Active Substance: CYCLOSPORINE
     Indication: TRANSPLANT
     Dosage: UNK
     Route: 065

REACTIONS (1)
  - Intellectual disability [Unknown]
